FAERS Safety Report 21794940 (Version 1)
Quarter: 2022Q4

REPORT INFORMATION
  Report Type: Spontaneous
  Country: FR (occurrence: FR)
  Receive Date: 20221229
  Receipt Date: 20221229
  Transmission Date: 20230113
  Serious: Yes (Hospitalization)
  Sender: FDA-Public Use
  Company Number: None

PATIENT
  Age: 29 Year
  Sex: Male
  Weight: 150 kg

DRUGS (1)
  1. DOXYCYCLINE [Suspect]
     Active Substance: DOXYCYCLINE
     Indication: Hidradenitis
     Dosage: 100 MILLIGRAM, QD
     Route: 048
     Dates: start: 20220823, end: 20221016

REACTIONS (3)
  - Condition aggravated [Recovering/Resolving]
  - Papilloedema [Recovering/Resolving]
  - Idiopathic intracranial hypertension [Recovering/Resolving]

NARRATIVE: CASE EVENT DATE: 20221001
